FAERS Safety Report 8851276 (Version 3)
Quarter: 2013Q1

REPORT INFORMATION
  Report Type: Spontaneous
  Country: DE (occurrence: DE)
  Receive Date: 20121019
  Receipt Date: 20130107
  Transmission Date: 20140127
  Serious: Yes (Death)
  Sender: FDA-Public Use
  Company Number: DE-VERTEX PHARMACEUTICAL INC.-000000000000001171

PATIENT
  Age: 48 Year
  Sex: Male
  Weight: 78 kg

DRUGS (10)
  1. INCIVO [Suspect]
     Indication: HEPATITIS C
     Dosage: DOSAGE FORM: TABLET
     Route: 048
     Dates: start: 20111020, end: 20120113
  2. INCIVO [Suspect]
     Indication: HEPATIC CIRRHOSIS
  3. PEGASYS [Concomitant]
     Indication: HEPATIC CIRRHOSIS
     Dosage: DOSAGE FORM: INJECTION
     Route: 058
     Dates: start: 20111020, end: 20120601
  4. PEGASYS [Concomitant]
     Indication: HEPATITIS C
  5. COPEGUS [Concomitant]
     Indication: HEPATIC CIRRHOSIS
     Dosage: DOSAGE FORM: TABLET
     Route: 048
     Dates: start: 20111020, end: 20120601
  6. COPEGUS [Concomitant]
     Indication: HEPATITIS C
  7. FLUOXETIN [Concomitant]
     Indication: DEPRESSION
     Dosage: 20 MG, QD
     Route: 048
     Dates: start: 20120113, end: 20120605
  8. METOPROLOL [Concomitant]
     Dosage: 50 MG, BID
     Route: 048
     Dates: start: 20120220, end: 20120705
  9. SPIRONOLACTON [Concomitant]
     Indication: HEPATIC CIRRHOSIS
     Dosage: 100 MG, QD
     Route: 048
     Dates: start: 20120220, end: 20120705
  10. TORASEMID [Concomitant]
     Indication: VARICES OESOPHAGEAL
     Dosage: 5 MG, QD
     Route: 048
     Dates: start: 20120220, end: 20120705

REACTIONS (5)
  - Multi-organ failure [Fatal]
  - Septic shock [Fatal]
  - Hepatic failure [Fatal]
  - Renal failure [Fatal]
  - Bronchitis [Recovered/Resolved]
